FAERS Safety Report 24244884 (Version 1)
Quarter: 2024Q3

REPORT INFORMATION
  Report Type: Spontaneous
  Country: US (occurrence: US)
  Receive Date: 20240823
  Receipt Date: 20240823
  Transmission Date: 20241017
  Serious: No
  Sender: BAUSCH AND LOMB
  Company Number: US-BAUSCH-BL-2024-012466

PATIENT
  Sex: Male

DRUGS (2)
  1. WELLBUTRIN XL [Suspect]
     Active Substance: BUPROPION HYDROCHLORIDE
     Indication: Product used for unknown indication
     Route: 065
  2. WELLBUTRIN XL [Suspect]
     Active Substance: BUPROPION HYDROCHLORIDE
     Route: 065

REACTIONS (4)
  - Memory impairment [Unknown]
  - Disturbance in attention [Unknown]
  - Patient dissatisfaction with treatment [Unknown]
  - Therapeutic response unexpected [Unknown]
